APPROVED DRUG PRODUCT: OXAPROZIN
Active Ingredient: OXAPROZIN
Strength: 600MG
Dosage Form/Route: TABLET;ORAL
Application: A075987 | Product #001 | TE Code: AB
Applicant: CHARTWELL LIFE MOLECULES LLC
Approved: Sep 2, 2004 | RLD: No | RS: No | Type: RX